FAERS Safety Report 16409402 (Version 1)
Quarter: 2019Q2

REPORT INFORMATION
  Report Type: Spontaneous
  Country: US (occurrence: US)
  Receive Date: 20190610
  Receipt Date: 20190610
  Transmission Date: 20190711
  Serious: Yes (Hospitalization, Other)
  Sender: FDA-Public Use
  Company Number: US-009507513-1906USA002016

PATIENT
  Age: 30 Year
  Sex: Female

DRUGS (3)
  1. KEYTRUDA [Suspect]
     Active Substance: PEMBROLIZUMAB
     Indication: OVARIAN CANCER STAGE III
     Dosage: UNK, CYCLICAL
  2. ETOPOSIDE. [Concomitant]
     Active Substance: ETOPOSIDE
     Indication: OVARIAN CANCER STAGE III
     Dosage: UNK, CYCLICAL
  3. CISPLATIN. [Concomitant]
     Active Substance: CISPLATIN
     Indication: OVARIAN CANCER STAGE III
     Dosage: UNK, CYCLICAL

REACTIONS (2)
  - Hyperthyroidism [Recovering/Resolving]
  - Thyroiditis [Recovering/Resolving]
